FAERS Safety Report 9300239 (Version 1)
Quarter: 2012Q4

REPORT INFORMATION
  Report Type: Spontaneous
  Country: ES (occurrence: None)
  Receive Date: 20121109
  Receipt Date: 20121109
  Transmission Date: 20130627
  Serious: Yes (Other)
  Sender: FDA-Public Use
  Company Number: 2011S1000628

PATIENT
  Age: 83 Year
  Sex: Male

DRUGS (1)
  1. CUBICIN (DAPTOMYCIN) [Suspect]
     Indication: ENDOCARDITIS
     Dates: start: 20100901

REACTIONS (1)
  - Pneumonitis [None]
